FAERS Safety Report 5408768-2 (Version None)
Quarter: 2007Q3

REPORT INFORMATION
  Report Type: 
  Country: None (occurrence: None)
  Receive Date: 20070808
  Receipt Date: 20070727
  Transmission Date: 20080115
  Serious: Yes (Other)
  Sender: FDA-Public Use
  Company Number: JP-PFIZER INC-2007052425

PATIENT
  Sex: Female
  Weight: 47 kg

DRUGS (9)
  1. AZULFIDINE EN-TABS [Suspect]
     Indication: RHEUMATOID ARTHRITIS
     Route: 048
     Dates: start: 20061010, end: 20061115
  2. KAKKON-TO [Suspect]
     Route: 048
     Dates: start: 20061103, end: 20061104
  3. POLITOSE [Concomitant]
     Route: 048
  4. CEVIMELINE HYDROCHLORIDE [Concomitant]
     Route: 048
  5. PAROTIN [Concomitant]
     Route: 048
  6. HICEE [Concomitant]
     Route: 048
  7. MYTEAR [Concomitant]
     Route: 031
  8. HYALEIN [Concomitant]
     Route: 031
  9. LEVOFLOXACIN [Concomitant]
     Route: 048

REACTIONS (1)
  - DRUG RASH WITH EOSINOPHILIA AND SYSTEMIC SYMPTOMS [None]
